FAERS Safety Report 17919817 (Version 1)
Quarter: 2020Q2

REPORT INFORMATION
  Report Type: Spontaneous
  Country: US (occurrence: US)
  Receive Date: 20200619
  Receipt Date: 20200619
  Transmission Date: 20200714
  Serious: No
  Sender: FDA-Public Use
  Company Number: US-009507513-2006USA003897

PATIENT
  Age: 64 Year
  Sex: Male

DRUGS (1)
  1. SINEMET [Suspect]
     Active Substance: CARBIDOPA\LEVODOPA
     Indication: ESSENTIAL TREMOR
     Dosage: 25/100 MILLIGRAM, TID
     Route: 048

REACTIONS (1)
  - Therapy non-responder [Unknown]
